FAERS Safety Report 4942179-9 (Version None)
Quarter: 2006Q1

REPORT INFORMATION
  Report Type: 
  Country: None (occurrence: None)
  Receive Date: 20060313
  Receipt Date: 20050822
  Transmission Date: 20060701
  Serious: No
  Sender: FDA-Public Use
  Company Number: US-GLAXOSMITHKLINE-A0571179A

PATIENT
  Age: 37 Year
  Sex: Female

DRUGS (2)
  1. NICORETTE (MINT) [Suspect]
  2. NICODERM CQ [Suspect]
     Dates: start: 20050822, end: 20050822

REACTIONS (4)
  - APPLICATION SITE ERYTHEMA [None]
  - APPLICATION SITE IRRITATION [None]
  - FEELING HOT [None]
  - TOOTH DISORDER [None]
